FAERS Safety Report 7647643-X (Version None)
Quarter: 2011Q3

REPORT INFORMATION
  Report Type: 
  Country: None (occurrence: None)
  Receive Date: 20110801
  Receipt Date: 20110801
  Transmission Date: 20111222
  Serious: Yes (Hospitalization)
  Sender: FDA-Public Use
  Company Number: None

PATIENT
  Age: 57 Year
  Sex: Male
  Weight: 78.471 kg

DRUGS (2)
  1. PALIPERIDONE [Suspect]
     Indication: SCHIZOAFFECTIVE DISORDER
     Dosage: 117MG
     Route: 030
     Dates: start: 20110531, end: 20110728
  2. RISPERIDONE [Concomitant]
     Dosage: 1MG
     Route: 048

REACTIONS (2)
  - ATRIAL FIBRILLATION [None]
  - MENTAL STATUS CHANGES [None]
